FAERS Safety Report 12262372 (Version 1)
Quarter: 2016Q2

REPORT INFORMATION
  Report Type: Spontaneous
  Country: US (occurrence: US)
  Receive Date: 20160413
  Receipt Date: 20160413
  Transmission Date: 20160815
  Serious: No
  Sender: FDA-Public Use
  Company Number: US-PFIZER INC-2016165213

PATIENT
  Age: 59 Year
  Sex: Female
  Weight: 71 kg

DRUGS (2)
  1. LEVOTHYROXINE SODIUM. [Suspect]
     Active Substance: LEVOTHYROXINE SODIUM
     Indication: HYPOTHYROIDISM
     Dosage: 100 UG, 1X/DAY
  2. LEXAPRO [Concomitant]
     Active Substance: ESCITALOPRAM OXALATE
     Indication: DEPRESSION
     Dosage: 200 MG, 1X/DAY

REACTIONS (2)
  - Abdominal pain upper [Recovered/Resolved]
  - Malaise [Recovered/Resolved]
